FAERS Safety Report 8016970-9 (Version None)
Quarter: 2012Q1

REPORT INFORMATION
  Report Type: 
  Country: None (occurrence: None)
  Receive Date: 20120102
  Receipt Date: 20111227
  Transmission Date: 20120608
  Serious: Yes (Death, Hospitalization)
  Sender: FDA-Public Use
  Company Number: PHHY2011JP113119

PATIENT
  Sex: Female

DRUGS (8)
  1. GLEEVEC [Suspect]
     Dosage: 300 MG, DAILY
     Route: 048
     Dates: start: 20051127, end: 20051213
  2. GLEEVEC [Suspect]
     Dosage: 300 MG, DAILY
     Route: 048
     Dates: start: 20080409, end: 20080521
  3. GLEEVEC [Suspect]
     Dosage: 300 MG,DAILY
     Route: 048
     Dates: start: 20081105, end: 20090407
  4. GLEEVEC [Suspect]
     Indication: GASTROINTESTINAL STROMAL TUMOUR
     Dosage: 400 MG, DAILY
     Route: 048
     Dates: start: 20050402, end: 20051126
  5. GLEEVEC [Suspect]
     Dosage: 300 MG, DAILY
     Route: 048
     Dates: start: 20060315
  6. GLEEVEC [Suspect]
     Dosage: 400 MG, DAILY
     Route: 048
     Dates: start: 20051214, end: 20060301
  7. GLEEVEC [Suspect]
     Dosage: 300 MG, DAILY
     Route: 048
     Dates: start: 20080530, end: 20081021
  8. GLEEVEC [Suspect]
     Dosage: 200 MG, DAILY
     Route: 048
     Dates: start: 20090422, end: 20091007

REACTIONS (3)
  - CEREBRAL INFARCTION [None]
  - NEOPLASM MALIGNANT [None]
  - NEOPLASM PROGRESSION [None]
